FAERS Safety Report 9003124 (Version 1)
Quarter: 2013Q1

REPORT INFORMATION
  Report Type: Spontaneous
  Country: GB (occurrence: GB)
  Receive Date: 20130108
  Receipt Date: 20130108
  Transmission Date: 20140127
  Serious: Yes (Other)
  Sender: FDA-Public Use
  Company Number: GB-ROCHE-1177308

PATIENT
  Age: 79 Year
  Sex: Male

DRUGS (2)
  1. MIRCERA [Suspect]
     Indication: NEPHROGENIC ANAEMIA
     Route: 030
     Dates: start: 20130103
  2. WARFARIN [Concomitant]
     Dosage: 4 MG ALTERNATING WITH 5 MG
     Route: 048

REACTIONS (1)
  - International normalised ratio increased [Not Recovered/Not Resolved]
